FAERS Safety Report 14492468 (Version 1)
Quarter: 2018Q1

REPORT INFORMATION
  Report Type: Spontaneous
  Country: US (occurrence: US)
  Receive Date: 20180206
  Receipt Date: 20180206
  Transmission Date: 20180509
  Serious: Yes (Other)
  Sender: FDA-Public Use
  Company Number: US-PFIZER INC-2018050300

PATIENT
  Sex: Male

DRUGS (1)
  1. VIAGRA [Suspect]
     Active Substance: SILDENAFIL CITRATE
     Indication: ERECTILE DYSFUNCTION
     Dosage: 150 MG AS NEEDED
     Route: 048
     Dates: start: 2017

REACTIONS (4)
  - Erection increased [Unknown]
  - Priapism [Unknown]
  - Balanoposthitis [Unknown]
  - Overdose [Unknown]
